FAERS Safety Report 7820008-3 (Version None)
Quarter: 2011Q4

REPORT INFORMATION
  Report Type: 
  Country: None (occurrence: None)
  Receive Date: 20111018
  Receipt Date: 20111011
  Transmission Date: 20120403
  Serious: No
  Sender: FDA-Public Use
  Company Number: PHHY2010NZ58273

PATIENT
  Sex: Male
  Weight: 87.5 kg

DRUGS (1)
  1. SANDOSTATIN LAR [Suspect]
     Indication: ACROMEGALY
     Dosage: 20 MG,
     Route: 030
     Dates: start: 20080107, end: 20080428

REACTIONS (2)
  - PAIN [None]
  - VOMITING [None]
